FAERS Safety Report 6109389-9 (Version None)
Quarter: 2009Q1

REPORT INFORMATION
  Report Type: 
  Country: None (occurrence: None)
  Receive Date: 20090310
  Receipt Date: 20090306
  Transmission Date: 20090719
  Serious: Yes (Death)
  Sender: FDA-Public Use
  Company Number: A0772145A

PATIENT
  Age: 57 Year
  Sex: Male
  Weight: 96.3 kg

DRUGS (3)
  1. MELPHALAN [Suspect]
     Indication: AMYLOIDOSIS
     Dates: start: 20070519, end: 20070520
  2. VELCADE [Suspect]
     Indication: AMYLOIDOSIS
  3. DEXAMETHASONE [Suspect]
     Indication: AMYLOIDOSIS

REACTIONS (4)
  - CARDIAC ARREST [None]
  - DEPRESSED LEVEL OF CONSCIOUSNESS [None]
  - HYPOTENSION [None]
  - PULSE ABSENT [None]
